FAERS Safety Report 9308493 (Version 2)
Quarter: 2013Q2

REPORT INFORMATION
  Report Type: Spontaneous
  Country: US (occurrence: US)
  Receive Date: 20130524
  Receipt Date: 20130626
  Transmission Date: 20140414
  Serious: No
  Sender: FDA-Public Use
  Company Number: US-PFIZER INC-2013157436

PATIENT
  Age: 76 Year
  Sex: Female
  Weight: 56.69 kg

DRUGS (4)
  1. TOVIAZ [Suspect]
     Indication: HYPERTONIC BLADDER
     Dosage: 8 MG, 1X/DAY
     Route: 048
     Dates: start: 20130508
  2. XYZAL [Concomitant]
     Indication: HYPERSENSITIVITY
     Dosage: UNK
  3. PRILOSEC [Concomitant]
     Dosage: UNK
  4. CHLORDIAZEPOXIDE/CLIDINIUM [Concomitant]
     Dosage: UNK

REACTIONS (4)
  - Speech disorder [Unknown]
  - Dry mouth [Unknown]
  - Drug ineffective [Unknown]
  - Pollakiuria [Unknown]
